FAERS Safety Report 7419034-8 (Version None)
Quarter: 2011Q2

REPORT INFORMATION
  Report Type: 
  Country: None (occurrence: None)
  Receive Date: 20110415
  Receipt Date: 20110410
  Transmission Date: 20111010
  Serious: Yes (Other)
  Sender: FDA-Public Use
  Company Number: US-PURDUE-USA-2010-0044268

PATIENT
  Sex: Female

DRUGS (2)
  1. OXYCONTIN [Suspect]
     Indication: PAIN
     Dosage: 240 MG, Q8H
  2. OXYCONTIN [Suspect]
     Dosage: 160 MG, Q8H
     Dates: start: 20000101

REACTIONS (8)
  - PAIN [None]
  - ROAD TRAFFIC ACCIDENT [None]
  - THERAPEUTIC RESPONSE DECREASED [None]
  - DIARRHOEA [None]
  - INTENTIONAL DRUG MISUSE [None]
  - FOOT FRACTURE [None]
  - TREMOR [None]
  - ABDOMINAL PAIN UPPER [None]
